FAERS Safety Report 7539699-X (Version None)
Quarter: 2011Q2

REPORT INFORMATION
  Report Type: 
  Country: None (occurrence: None)
  Receive Date: 20110610
  Receipt Date: 20110601
  Transmission Date: 20111010
  Serious: Yes (Death)
  Sender: FDA-Public Use
  Company Number: GB-GENZYME-CLOF-1001618

PATIENT
  Sex: Female

DRUGS (11)
  1. DAUNORUBICIN HCL [Suspect]
     Indication: ACUTE MYELOID LEUKAEMIA
     Dosage: 1ST COURSE
     Route: 065
     Dates: start: 20110217, end: 20110401
  2. FLUDARA [Suspect]
     Indication: ACUTE MYELOID LEUKAEMIA
     Dosage: UNK AS PART OF FLAG-IDA
     Route: 065
  3. DAUNORUBICIN HCL [Suspect]
     Dosage: 2ND COURSE
     Route: 065
     Dates: start: 20110217, end: 20110401
  4. CYTARABINE [Suspect]
     Indication: ACUTE MYELOID LEUKAEMIA
     Dosage: UNK AS PART OF FLAG-IDA
     Route: 065
  5. EVOLTRA [Suspect]
     Dosage: 2ND COURSE
     Route: 065
     Dates: start: 20110217, end: 20110401
  6. NEUPOGEN [Suspect]
     Indication: ACUTE MYELOID LEUKAEMIA
     Dosage: UNK AS PART OF FLAG-IDA
     Route: 065
  7. IDARUBICIN HCL [Suspect]
     Indication: ACUTE MYELOID LEUKAEMIA
     Dosage: UNK AS PART OF FLAG-IDA
     Route: 065
  8. ETOPOSIDE [Suspect]
     Indication: ACUTE MYELOID LEUKAEMIA
     Dosage: UNK AS PART OF ADE
     Route: 065
  9. EVOLTRA [Suspect]
     Indication: ACUTE MYELOID LEUKAEMIA
     Dosage: 1ST COURSE
     Route: 065
     Dates: start: 20110217, end: 20110401
  10. CYTARABINE [Suspect]
     Indication: ACUTE MYELOID LEUKAEMIA
     Dosage: UNK PART OF ADE
     Route: 065
  11. MYLOTARG [Suspect]
     Indication: ACUTE MYELOID LEUKAEMIA
     Dosage: UNK AS PART OF ADE
     Route: 065

REACTIONS (1)
  - ACUTE MYELOID LEUKAEMIA RECURRENT [None]
